FAERS Safety Report 12155567 (Version 2)
Quarter: 2016Q1

REPORT INFORMATION
  Report Type: Report from Study
  Country: BR (occurrence: BR)
  Receive Date: 20160307
  Receipt Date: 20160309
  Transmission Date: 20160526
  Serious: Yes (Life-Threatening, Other)
  Sender: FDA-Public Use
  Company Number: BR-ABBVIE-16K-020-1573052-00

PATIENT
  Age: 55 Year
  Sex: Female
  Weight: 75 kg

DRUGS (13)
  1. HUMIRA [Suspect]
     Active Substance: ADALIMUMAB
     Indication: PSORIASIS
     Dosage: LOADING DOSE
     Route: 058
     Dates: start: 20120215, end: 20120215
  2. HUMIRA [Suspect]
     Active Substance: ADALIMUMAB
     Route: 058
  3. MIOSAN [Concomitant]
     Active Substance: CYCLOBENZAPRINE
     Indication: PAIN
     Route: 048
  4. ALPRAZOLAM. [Concomitant]
     Active Substance: ALPRAZOLAM
     Indication: DEPRESSION
  5. LOSARTAN. [Concomitant]
     Active Substance: LOSARTAN
     Indication: HYPERTENSION
     Route: 048
     Dates: start: 1985
  6. FLUOXETINE [Concomitant]
     Active Substance: FLUOXETINE HYDROCHLORIDE
     Indication: DEPRESSION
  7. DEOCIL [Concomitant]
     Active Substance: KETOROLAC TROMETHAMINE
     Indication: PAIN
     Route: 048
  8. ALPRAZOLAM. [Concomitant]
     Active Substance: ALPRAZOLAM
     Indication: ANXIETY DISORDER
     Route: 048
     Dates: start: 2012
  9. HUMIRA [Suspect]
     Active Substance: ADALIMUMAB
     Route: 058
  10. CLONAZEPAM. [Concomitant]
     Active Substance: CLONAZEPAM
     Indication: ANXIETY DISORDER
     Route: 048
     Dates: start: 2012
  11. FLUOXETINE [Concomitant]
     Active Substance: FLUOXETINE HYDROCHLORIDE
     Indication: ANXIETY DISORDER
     Route: 048
     Dates: start: 2012
  12. HYDROCHLOROTHIAZIDE. [Concomitant]
     Active Substance: HYDROCHLOROTHIAZIDE
     Indication: HYPERTENSION
     Route: 048
     Dates: start: 1985
  13. SINVASTATINA [Concomitant]
     Active Substance: SIMVASTATIN
     Indication: BLOOD CHOLESTEROL ABNORMAL
     Route: 048
     Dates: start: 2006

REACTIONS (18)
  - Skin wound [Not Recovered/Not Resolved]
  - Panic disorder [Unknown]
  - Arthralgia [Not Recovered/Not Resolved]
  - Nail disorder [Not Recovered/Not Resolved]
  - Erythema [Not Recovered/Not Resolved]
  - Skin exfoliation [Not Recovered/Not Resolved]
  - Psoriasis [Unknown]
  - Intentional product misuse [Recovering/Resolving]
  - Suicide attempt [Recovering/Resolving]
  - Skin reaction [Not Recovered/Not Resolved]
  - Depression [Unknown]
  - Blood glucose abnormal [Unknown]
  - Blood cholesterol abnormal [Unknown]
  - Wound [Recovering/Resolving]
  - Onychoclasis [Not Recovered/Not Resolved]
  - Suicidal ideation [Unknown]
  - Bone disorder [Not Recovered/Not Resolved]
  - Anxiety disorder [Unknown]

NARRATIVE: CASE EVENT DATE: 201403
